FAERS Safety Report 16320336 (Version 4)
Quarter: 2019Q3

REPORT INFORMATION
  Report Type: Spontaneous
  Country: US (occurrence: US)
  Receive Date: 20190516
  Receipt Date: 20190827
  Transmission Date: 20191004
  Serious: Yes (Hospitalization)
  Sender: FDA-Public Use
  Company Number: US-PFIZER INC-2019207134

PATIENT
  Age: 66 Year
  Sex: Female
  Weight: 120.2 kg

DRUGS (1)
  1. XELJANZ [Suspect]
     Active Substance: TOFACITINIB CITRATE
     Indication: RHEUMATOID ARTHRITIS
     Dosage: 5 MG, 2X/DAY (ONCE IN THE MORNING AND ONCE AT NIGH/5 MG/AM; 5 MG/PM)
     Route: 048
     Dates: start: 2019

REACTIONS (5)
  - Malaise [Unknown]
  - Bone pain [Unknown]
  - Pain [Unknown]
  - Arthralgia [Unknown]
  - Product dose omission [Unknown]

NARRATIVE: CASE EVENT DATE: 20190603
